FAERS Safety Report 7865709-6 (Version None)
Quarter: 2011Q4

REPORT INFORMATION
  Report Type: 
  Country: None (occurrence: None)
  Receive Date: 20111028
  Receipt Date: 20110211
  Transmission Date: 20120403
  Serious: No
  Sender: FDA-Public Use
  Company Number: US-GLAXOSMITHKLINE-A0913146A

PATIENT
  Age: 54 Year
  Sex: Female

DRUGS (6)
  1. ADVAIR DISKUS 100/50 [Suspect]
     Indication: CHRONIC OBSTRUCTIVE PULMONARY DISEASE
     Dosage: 1PUFF TWICE PER DAY
     Route: 055
     Dates: start: 20101110
  2. SPIRIVA [Concomitant]
  3. PREVACID [Concomitant]
  4. APO-AMITRIPTYLINE [Concomitant]
  5. EFFEXOR XR [Concomitant]
  6. CELEBREX [Concomitant]

REACTIONS (7)
  - HEADACHE [None]
  - BEDRIDDEN [None]
  - CHILLS [None]
  - FATIGUE [None]
  - INCREASED UPPER AIRWAY SECRETION [None]
  - ASTHENIA [None]
  - COUGH [None]
